FAERS Safety Report 15178234 (Version 9)
Quarter: 2018Q4

REPORT INFORMATION
  Report Type: Spontaneous
  Country: FR (occurrence: FR)
  Receive Date: 20180721
  Receipt Date: 20181231
  Transmission Date: 20190204
  Serious: Yes (Hospitalization, Other)
  Sender: FDA-Public Use
  Company Number: FR-AUROBINDO-AUR-APL-2018-036558

PATIENT
  Age: 62 Year
  Sex: Female
  Weight: 81 kg

DRUGS (47)
  1. ACETYLLEUCINE [Suspect]
     Active Substance: ACETYLLEUCINE
     Indication: DIZZINESS
     Dosage: 2 DOSAGE FORM, ONCE A DAY
     Route: 065
  2. FLUVASTATIN MYLAN [Suspect]
     Active Substance: FLUVASTATIN SODIUM
     Dosage: UNK
     Route: 065
     Dates: start: 20160730
  3. MELOXICAM BIOGARAN [Suspect]
     Active Substance: MELOXICAM
     Indication: PRODUCT USED FOR UNKNOWN INDICATION
     Dosage: UNK
     Route: 065
  4. ALDACTAZINE [Suspect]
     Active Substance: ALTHIAZIDE\SPIRONOLACTONE
     Indication: HYPERTENSION
     Dosage: UNK
     Route: 065
     Dates: start: 20130301
  5. ATORVASTATIN MYLAN [Suspect]
     Active Substance: ATORVASTATIN
     Dosage: 10 MILLIGRAM, ONCE A DAY
     Route: 065
     Dates: start: 20160301, end: 20160517
  6. ANTALNOX [Suspect]
     Active Substance: NAPROXEN SODIUM
     Indication: PRODUCT USED FOR UNKNOWN INDICATION
     Dosage: UNK
     Route: 065
     Dates: start: 20160311, end: 20160730
  7. NAPROXEN SODIUM. [Suspect]
     Active Substance: NAPROXEN SODIUM
     Indication: BACK PAIN
     Dosage: 1 DOSAGE FORM, ONCE A DAY
     Route: 065
     Dates: start: 20160311
  8. BACTRIM [Concomitant]
     Active Substance: SULFAMETHOXAZOLE\TRIMETHOPRIM
     Indication: INFECTION
     Dosage: 1 DF, MON WED FRI AT 08:00
     Route: 048
  9. RESIKALI [Concomitant]
     Active Substance: CALCIUM POLYSTYRENE SULFONATE
     Dosage: 1 SPOON IN THE MORNING AND IN THE EVENING, BID
     Route: 065
  10. ACEBUTOLOL FILM-COATED TABLET [Suspect]
     Active Substance: ACEBUTOLOL
     Indication: HYPERTENSION
     Dosage: 0.5 DF, 1/2 TABLET AT 08:00
     Route: 048
  11. APRANAX                            /00256201/ [Suspect]
     Active Substance: NAPROXEN
     Indication: FATIGUE
  12. ATORVASTATIN MYLAN [Suspect]
     Active Substance: ATORVASTATIN
     Indication: PAIN IN EXTREMITY
     Dosage: 20 MILLIGRAM, ONCE A DAY
     Route: 065
     Dates: start: 20150922
  13. ATORVASTATIN MYLAN [Suspect]
     Active Substance: ATORVASTATIN
     Dosage: 1 DOSAGE FORM, ONCE A DAY
     Route: 065
     Dates: start: 20160730
  14. CELLCEPT [Concomitant]
     Active Substance: MYCOPHENOLATE MOFETIL\MYCOPHENOLATE MOFETIL HYDROCHLORIDE
     Indication: IMMUNOSUPPRESSION
     Dosage: 2 DF, BID (2 TABLETS AT 08:00, 20:00 (IE 1G MORNING AND EVENING)
     Route: 065
  15. JANUVIA [Concomitant]
     Active Substance: SITAGLIPTIN PHOSPHATE
     Indication: CARDIAC DISORDER
     Dosage: 1 DOSAGE FORM, ONCE A DAY
     Route: 065
  16. RAMIPRIL TABLET [Suspect]
     Active Substance: RAMIPRIL
     Indication: PRODUCT USED FOR UNKNOWN INDICATION
     Dosage: 1 DOSAGE FORM, ONCE A DAY
     Route: 048
     Dates: start: 20121105
  17. TRAMADOL+PARACETAMOL [Suspect]
     Active Substance: ACETAMINOPHEN\TRAMADOL
     Indication: PRODUCT USED FOR UNKNOWN INDICATION
     Dosage: UNK
     Route: 065
  18. ANTALNOX [Suspect]
     Active Substance: NAPROXEN SODIUM
     Dosage: 1 DOSAGE FORM, ONCE A DAY
     Route: 065
     Dates: start: 20160730
  19. TANGANIL [Suspect]
     Active Substance: ACETYLLEUCINE
     Indication: PRODUCT USED FOR UNKNOWN INDICATION
     Dosage: UNK
     Route: 065
  20. KARDEGIC [Concomitant]
     Active Substance: ASPIRIN DL-LYSINE
     Indication: CARDIAC DISORDER
     Dosage: 1 DOSAGE FORM, ONCE A DAY
     Route: 065
  21. ADVAGRAF [Concomitant]
     Active Substance: TACROLIMUS
     Indication: IMMUNOSUPPRESSION
     Dosage: 6 MG, AT 08:00
     Route: 048
  22. LERCANIDIPINE FILM-COATED [Suspect]
     Active Substance: LERCANIDIPINE
     Indication: PRODUCT USED FOR UNKNOWN INDICATION
     Dosage: 1 DOSAGE FORM, ONCE A DAY
     Route: 065
     Dates: start: 20180527
  23. ACETYLLEUCINE [Suspect]
     Active Substance: ACETYLLEUCINE
     Dosage: 2 DOSAGE FORM, TWO TIMES A DAY
     Route: 065
  24. ANTALNOX [Suspect]
     Active Substance: NAPROXEN SODIUM
     Dosage: 1 DOSAGE FORM, ONCE A DAY
     Route: 065
     Dates: start: 20160322, end: 20160730
  25. NAPROXEN SODIUM. [Suspect]
     Active Substance: NAPROXEN SODIUM
     Indication: FATIGUE
     Dosage: 1 DOSAGE FORM, ONCE A DAY
     Route: 065
     Dates: start: 20160322, end: 20160730
  26. NAPROXEN SODIUM. [Suspect]
     Active Substance: NAPROXEN SODIUM
     Indication: NAUSEA
     Dosage: 1 DOSAGE FORM, ONCE A DAY
     Route: 065
     Dates: start: 20160730
  27. VOGALENE [Concomitant]
     Active Substance: METOPIMAZINE
     Indication: PRODUCT USED FOR UNKNOWN INDICATION
     Dosage: UNK UNK, UNK
     Route: 065
     Dates: start: 20160331
  28. ACEBUTOLOL FILM-COATED TABLET [Suspect]
     Active Substance: ACEBUTOLOL
     Indication: PRODUCT USED FOR UNKNOWN INDICATION
     Dosage: UNK UNK, UNK
     Route: 065
     Dates: start: 20121105
  29. ALDACTAZINE [Suspect]
     Active Substance: ALTHIAZIDE\SPIRONOLACTONE
     Dosage: 1 DOSAGE FORM, ONCE A DAY
     Route: 048
     Dates: start: 20180527
  30. OFLOCET                            /00731801/ [Concomitant]
     Active Substance: OFLOXACIN
     Indication: URINARY TRACT INFECTION
     Dosage: UNK (5 DAYS)
     Route: 065
  31. MEDROL [Concomitant]
     Active Substance: METHYLPREDNISOLONE
     Indication: IMMUNOSUPPRESSION
     Dosage: UNK
     Route: 065
  32. LANSOPRAZOLE. [Concomitant]
     Active Substance: LANSOPRAZOLE
     Indication: GENERAL SYMPTOM
     Dosage: 30 MG, QD (30 MG AT 20:00)
     Route: 048
  33. OMEPRAZOLE. [Concomitant]
     Active Substance: OMEPRAZOLE
     Indication: PRODUCT USED FOR UNKNOWN INDICATION
     Dosage: UNK UNK, UNK
     Route: 065
     Dates: start: 20160331
  34. APRANAX                            /00256201/ [Suspect]
     Active Substance: NAPROXEN
     Indication: NAUSEA
     Dosage: 1 DOSAGE FORM, ONCE A DAY
     Route: 065
     Dates: start: 20160321
  35. SECTRAL [Concomitant]
     Active Substance: ACEBUTOLOL HYDROCHLORIDE
     Indication: HYPERTENSION
     Dosage: 0.5 DF, 1/2 TABLET AT 08:00
     Route: 048
  36. RAMIPRIL TABLET [Suspect]
     Active Substance: RAMIPRIL
     Dosage: 1 DOSAGE FORM, ONCE A DAY
     Route: 048
     Dates: start: 20180527
  37. FLUVASTATIN MYLAN [Suspect]
     Active Substance: FLUVASTATIN SODIUM
     Indication: PRODUCT USED FOR UNKNOWN INDICATION
     Dosage: 1 DOSAGE FORM, ONCE A DAY
     Route: 065
     Dates: start: 20110201, end: 20160517
  38. MELOXICAM BIOGARAN [Suspect]
     Active Substance: MELOXICAM
     Dosage: 1 DOSAGE FORM, ONCE A DAY
     Route: 065
     Dates: start: 201603
  39. APRANAX                            /00256201/ [Suspect]
     Active Substance: NAPROXEN
     Indication: BACK PAIN
     Dosage: UNK, UNK
     Route: 065
     Dates: start: 20160730
  40. SECTRAL [Concomitant]
     Active Substance: ACEBUTOLOL HYDROCHLORIDE
     Indication: CARDIAC DISORDER
  41. CHOLECALCIFEROL [Concomitant]
     Active Substance: CHOLECALCIFEROL
     Indication: PRODUCT USED FOR UNKNOWN INDICATION
     Dosage: UNK
     Route: 065
  42. PARACETAMOL TABLET [Suspect]
     Active Substance: ACETAMINOPHEN
     Indication: BACK PAIN
     Dosage: 3 DOSAGE FORM, ONCE A DAY
     Route: 065
     Dates: start: 20110816
  43. ACEBUTOLOL FILM-COATED TABLET [Suspect]
     Active Substance: ACEBUTOLOL
     Indication: CARDIAC DISORDER
  44. ALDACTAZINE [Suspect]
     Active Substance: ALTHIAZIDE\SPIRONOLACTONE
     Indication: CARDIAC DISORDER
     Dosage: 1 DOSAGE FORM, ONCE A DAY
     Route: 065
     Dates: start: 20160321
  45. RESIKALI [Concomitant]
     Active Substance: CALCIUM POLYSTYRENE SULFONATE
     Indication: GENERAL SYMPTOM
     Dosage: AT 2 (UNITS UNKNOWN), QD
     Route: 065
  46. RESIKALI [Concomitant]
     Active Substance: CALCIUM POLYSTYRENE SULFONATE
     Dosage: 2 UNK, QD
     Route: 065
  47. PROGRAF [Concomitant]
     Active Substance: TACROLIMUS\TACROLIMUS ANHYDROUS
     Indication: PRODUCT USED FOR UNKNOWN INDICATION
     Dosage: UNK (AT 8)
     Route: 065

REACTIONS (6)
  - Jaundice [Unknown]
  - Sleep apnoea syndrome [Unknown]
  - Hepatitis [Unknown]
  - Gastrointestinal disorder [Unknown]
  - Hepatic necrosis [Unknown]
  - Hepatitis acute [Unknown]

NARRATIVE: CASE EVENT DATE: 201603
